FAERS Safety Report 4505093-9 (Version None)
Quarter: 2004Q4

REPORT INFORMATION
  Report Type: 
  Country: None (occurrence: None)
  Receive Date: 20041119
  Receipt Date: 20031201
  Transmission Date: 20050328
  Serious: Yes (Other)
  Sender: FDA-Public Use
  Company Number: GB-ABBOTT-03P-167-0243352-00

PATIENT
  Age: 24 Year
  Sex: Female
  Weight: 87.5 kg

DRUGS (3)
  1. REDUCTIL [Suspect]
     Indication: WEIGHT DECREASED
     Route: 048
     Dates: start: 20030411, end: 20031104
  2. EUGYNON [Interacting]
     Indication: CONTRACEPTION
     Route: 048
     Dates: start: 20020301, end: 20031104
  3. NICOTINE [Concomitant]
     Indication: DRUG WITHDRAWAL MAINTENANCE THERAPY
     Route: 045

REACTIONS (2)
  - DRUG INTERACTION [None]
  - UNINTENDED PREGNANCY [None]
